FAERS Safety Report 25887611 (Version 1)
Quarter: 2025Q4

REPORT INFORMATION
  Report Type: Spontaneous
  Country: EG (occurrence: EG)
  Receive Date: 20251007
  Receipt Date: 20251007
  Transmission Date: 20260117
  Serious: Yes (Hospitalization, Other)
  Sender: AMGEN
  Company Number: EG-AMGEN-EGYSP2025194864

PATIENT
  Age: 57 Year
  Sex: Female
  Weight: 42 kg

DRUGS (6)
  1. VECTIBIX [Suspect]
     Active Substance: PANITUMUMAB
     Indication: Colorectal cancer metastatic
     Dosage: 252 MILLIGRAM, Q2WK, 2 DOSE, INFUSION OVER 60 MINUTES
     Route: 040
     Dates: end: 20250808
  2. IRINOTECAN [Suspect]
     Active Substance: IRINOTECAN
     Indication: Colorectal cancer metastatic
     Dosage: 234 MILLIGRAM, Q2WK, STRENGTH 300 MG / 15 ML INTRAVENOUS INFUSION OVER 90 MINUTES DOSE 2
     Route: 040
     Dates: end: 20250808
  3. LEUCOVORIN CALCIUM [Suspect]
     Active Substance: LEUCOVORIN CALCIUM
     Indication: Colorectal cancer metastatic
     Dosage: 260 MILLIGRAM, Q2WK, STRENGTH 50 MG / 5 ML, INTRAVENOUS INFUSION OVER 2 HOURS FOR 2 DAYS, DOSE 2
     Route: 040
     Dates: end: 20250808
  4. FLUOROURACIL [Suspect]
     Active Substance: FLUOROURACIL
     Indication: Colorectal cancer metastatic
     Dosage: 1300 MILLIGRAM, Q2WK, STRENGTH 500 MG/10 ML, INTRAVENOUS SYRINGE + INFUSION OVER 23 HOURS FOR 2 DAYS
     Route: 040
     Dates: end: 20250808
  5. DEXAMETHASONE [Concomitant]
     Active Substance: DEXAMETHASONE
     Dosage: UNK
     Route: 040
  6. Emex [Concomitant]
     Dosage: UNK, TID, AMPOULE, PREMEDICATION AND TREATMENT
     Route: 040

REACTIONS (11)
  - Febrile neutropenia [Not Recovered/Not Resolved]
  - Leukopenia [Not Recovered/Not Resolved]
  - Thrombocytopenia [Not Recovered/Not Resolved]
  - Hypoalbuminaemia [Not Recovered/Not Resolved]
  - Chest pain [Not Recovered/Not Resolved]
  - Blood creatinine increased [Not Recovered/Not Resolved]
  - Blood pressure decreased [Not Recovered/Not Resolved]
  - Cough [Not Recovered/Not Resolved]
  - Vomiting [Not Recovered/Not Resolved]
  - Fatigue [Not Recovered/Not Resolved]
  - General physical health deterioration [Not Recovered/Not Resolved]

NARRATIVE: CASE EVENT DATE: 20250813
